FAERS Safety Report 5534488-X (Version None)
Quarter: 2007Q4

REPORT INFORMATION
  Report Type: 
  Country: None (occurrence: None)
  Receive Date: 20071205
  Receipt Date: 20071122
  Transmission Date: 20080405
  Serious: Yes (Hospitalization, Other)
  Sender: FDA-Public Use
  Company Number: GB-ASTRAZENECA-2007GB02114

PATIENT
  Age: 19 Year
  Sex: Female

DRUGS (10)
  1. MEROPENEM [Suspect]
     Indication: PSEUDOMONAS INFECTION
     Dates: start: 20000615
  2. MEROPENEM [Suspect]
  3. AZITHROMYCIN [Suspect]
     Indication: PSEUDOMONAS INFECTION
     Dates: start: 20000601
  4. AZITHROMYCIN [Suspect]
     Indication: ANTIINFLAMMATORY THERAPY
     Dates: start: 20000601
  5. GENTAMICIN [Suspect]
     Indication: PSEUDOMONAS INFECTION
     Route: 042
     Dates: start: 20000615
  6. GENTAMICIN [Suspect]
     Indication: LUNG DISORDER
     Route: 042
     Dates: start: 20000615
  7. GENTAMICIN [Suspect]
     Route: 042
  8. GENTAMICIN [Suspect]
     Route: 042
  9. TOBRAMYCIN [Suspect]
     Indication: PSEUDOMONAS INFECTION
     Route: 042
  10. TOBRAMYCIN [Suspect]
     Route: 042

REACTIONS (7)
  - BALANCE DISORDER [None]
  - CONDITION AGGRAVATED [None]
  - CYSTIC FIBROSIS [None]
  - DEAFNESS NEUROSENSORY [None]
  - DIZZINESS [None]
  - RENAL FAILURE ACUTE [None]
  - TINNITUS [None]
